FAERS Safety Report 4803072-5 (Version None)
Quarter: 2005Q4

REPORT INFORMATION
  Report Type: 
  Country: None (occurrence: None)
  Receive Date: 20051013
  Receipt Date: 20050928
  Transmission Date: 20060501
  Serious: Yes (Hospitalization)
  Sender: FDA-Public Use
  Company Number: DE_050917073

PATIENT
  Age: 64 Year
  Sex: Male

DRUGS (7)
  1. YENTREVE (DULOXETINE HYDROCHLORIDE) [Suspect]
     Indication: POST PROCEDURAL COMPLICATION
     Dates: start: 20050101
  2. YENTREVE (DULOXETINE HYDROCHLORIDE) [Suspect]
     Indication: STRESS INCONTINENCE
     Dates: start: 20050101
  3. SIMVASTATIN-RATIOPHARM (SIMVASTATIN) [Concomitant]
  4. AMLODIPINE RATIOPHARM (AMLODIPINE) [Concomitant]
  5. TRIAMETERON COM.- RATIOPHARM [Concomitant]
  6. ASS 100 ^CT-ARZENIMITTEL^ (ACETYTLSALICYLIC ACID) [Concomitant]
  7. BELOC -ZOC MITE (METOPROLOL SUCCINATE) [Concomitant]

REACTIONS (11)
  - BLOOD GLUCOSE INCREASED [None]
  - BUNDLE BRANCH BLOCK RIGHT [None]
  - CARDIOVASCULAR DISORDER [None]
  - CEREBROVASCULAR DISORDER [None]
  - CEREBROVASCULAR INSUFFICIENCY [None]
  - CONDUCTION DISORDER [None]
  - DIZZINESS [None]
  - FLATULENCE [None]
  - HYPERHIDROSIS [None]
  - NAUSEA [None]
  - SINUS BRADYCARDIA [None]
